FAERS Safety Report 6576484-X (Version None)
Quarter: 2010Q1

REPORT INFORMATION
  Report Type: 
  Country: None (occurrence: None)
  Receive Date: 20100210
  Receipt Date: 20100126
  Transmission Date: 20100710
  Serious: Yes (Hospitalization)
  Sender: FDA-Public Use
  Company Number: JP-PFIZER INC-2010013531

PATIENT
  Age: 67 Year
  Sex: Female

DRUGS (5)
  1. SEIBULE [Suspect]
     Indication: TYPE 2 DIABETES MELLITUS
     Dosage: UNK
     Route: 048
     Dates: start: 20080327, end: 20081215
  2. AMARYL [Concomitant]
     Dosage: 0.5 MG, UNK
     Route: 048
  3. ADALAT CC [Concomitant]
     Dosage: 20 MG, UNK
     Route: 048
  4. LOCHOL [Concomitant]
     Dosage: 20 MG, UNK
     Route: 048
     Dates: end: 20081215
  5. PARLODEL [Concomitant]
     Dosage: 2.5 MG, UNK
     Route: 048

REACTIONS (1)
  - PNEUMATOSIS INTESTINALIS [None]
